FAERS Safety Report 17389703 (Version 1)
Quarter: 2020Q1

REPORT INFORMATION
  Report Type: Report from Study
  Country: NL (occurrence: NL)
  Receive Date: 20200207
  Receipt Date: 20200207
  Transmission Date: 20200409
  Serious: Yes (Hospitalization, Other)
  Sender: FDA-Public Use
  Company Number: NVSC2020NL006452

PATIENT
  Age: 66 Year
  Sex: Female
  Weight: 165 kg

DRUGS (15)
  1. DABRAFENIB [Suspect]
     Active Substance: DABRAFENIB
     Indication: MALIGNANT MELANOMA
     Dosage: 150 MG, BID
     Route: 048
     Dates: start: 20191206, end: 20191218
  2. CALCI-CHEW [Concomitant]
     Indication: PRODUCT USED FOR UNKNOWN INDICATION
     Dosage: 1.25 G/800 IU (1 TABLET, 1XPER DAYFOR THE NIGHT)
     Route: 048
  3. ALENDRONIC ACID [Concomitant]
     Active Substance: ALENDRONIC ACID
     Indication: PRODUCT USED FOR UNKNOWN INDICATION
     Dosage: 70 MG (1XPER WEEK ON FRIDAY)
     Route: 048
  4. DICLOFENAC [Concomitant]
     Active Substance: DICLOFENAC
     Indication: PRODUCT USED FOR UNKNOWN INDICATION
     Dosage: 50 MG (IF NECESSARY 3X PER DAY)
     Route: 048
  5. CHLORAMPHENICOL [Concomitant]
     Active Substance: CHLORAMPHENICOL
     Indication: PRODUCT USED FOR UNKNOWN INDICATION
     Dosage: 10 MG/G (RIGHT EYE, 3X PER DAY WITH THE MEAL)
     Route: 048
  6. ESCITALOPRAM +PHARMA [Concomitant]
     Dosage: 20 MG (1X PER DAY WITH BREAKFAST)
     Route: 048
  7. DABRAFENIB [Suspect]
     Active Substance: DABRAFENIB
     Dosage: 150 MG, BID
     Route: 048
     Dates: start: 20191219, end: 20191223
  8. CETOMACROGOL [Concomitant]
     Active Substance: COSMETICS
     Indication: PRODUCT USED FOR UNKNOWN INDICATION
     Dosage: (IF NECESSARY 3X PER DAY)
     Route: 003
  9. ESCITALOPRAM +PHARMA [Concomitant]
     Indication: PRODUCT USED FOR UNKNOWN INDICATION
     Dosage: 10 MG (1X PER DAY WITH BREAKFAST)
     Route: 048
  10. PARACETAMOL [Concomitant]
     Active Substance: ACETAMINOPHEN
     Indication: PRODUCT USED FOR UNKNOWN INDICATION
     Dosage: 500 MG (1XPER DAY WITH BREAK FAST)
     Route: 048
  11. PARACETAMOL [Concomitant]
     Active Substance: ACETAMINOPHEN
     Dosage: 1000 MG (1XPER DAY WITH BREAK FAST)
     Route: 048
  12. TRAMETINIB [Suspect]
     Active Substance: TRAMETINIB
     Dosage: 2 MG, QD
     Route: 048
     Dates: start: 20191219, end: 20191223
  13. TRAMETINIB [Suspect]
     Active Substance: TRAMETINIB
     Indication: MALIGNANT MELANOMA
     Dosage: 2 MG, QD
     Route: 048
     Dates: start: 20191206, end: 20191218
  14. OMEPRAZOLE. [Concomitant]
     Active Substance: OMEPRAZOLE
     Indication: PRODUCT USED FOR UNKNOWN INDICATION
     Dosage: 20 MG (1XPER DAY WITH BREAKFAST)
     Route: 048
  15. PREDNISOLONE. [Concomitant]
     Active Substance: PREDNISOLONE
     Indication: PRODUCT USED FOR UNKNOWN INDICATION
     Dosage: 5 MG (1XPER DAY WITH BREAKFAST)
     Route: 048

REACTIONS (13)
  - Oropharyngeal pain [Unknown]
  - Lethargy [Unknown]
  - Weight decreased [Unknown]
  - Pyrexia [Unknown]
  - Eye irritation [Unknown]
  - Rash [Unknown]
  - Circulatory collapse [Unknown]
  - Chills [Unknown]
  - Pruritus [Unknown]
  - Drug intolerance [Recovered/Resolved]
  - Diarrhoea [Unknown]
  - Fatigue [Unknown]
  - Dizziness [Unknown]
